FAERS Safety Report 25622344 (Version 1)
Quarter: 2025Q3

REPORT INFORMATION
  Report Type: Spontaneous
  Country: TR (occurrence: TR)
  Receive Date: 20250730
  Receipt Date: 20250730
  Transmission Date: 20251020
  Serious: Yes (Other)
  Sender: R-PHARM US LLC
  Company Number: TR-R-PHARM US LLC-2025RPM00007

PATIENT
  Sex: Female

DRUGS (2)
  1. IXEMPRA [Suspect]
     Active Substance: IXABEPILONE
     Route: 050
  2. IXEMPRA [Suspect]
     Active Substance: IXABEPILONE

REACTIONS (2)
  - Vision blurred [Recovering/Resolving]
  - Dyspnoea [Recovering/Resolving]
